FAERS Safety Report 25471728 (Version 1)
Quarter: 2025Q2

REPORT INFORMATION
  Report Type: Spontaneous
  Country: SA (occurrence: SA)
  Receive Date: 20250624
  Receipt Date: 20250624
  Transmission Date: 20250717
  Serious: Yes (Other)
  Sender: SAMSUNG BIOEPIS
  Company Number: SA-SAMSUNG BIOEPIS-SB-2025-20773

PATIENT
  Age: 26 Year
  Sex: Male

DRUGS (2)
  1. INFLIXIMAB [Suspect]
     Active Substance: INFLIXIMAB
     Indication: Inflammatory bowel disease
  2. ADALIMUMAB [Suspect]
     Active Substance: ADALIMUMAB
     Indication: Inflammatory bowel disease

REACTIONS (4)
  - Lichen planus [Recovering/Resolving]
  - Therapeutic response decreased [Unknown]
  - Drug effective for unapproved indication [Unknown]
  - Off label use [Unknown]
